FAERS Safety Report 16426206 (Version 3)
Quarter: 2019Q3

REPORT INFORMATION
  Report Type: Report from Study
  Country: JP (occurrence: JP)
  Receive Date: 20190613
  Receipt Date: 20190806
  Transmission Date: 20191004
  Serious: Yes (Hospitalization, Other)
  Sender: FDA-Public Use
  Company Number: JP-JNJFOC-20190611682

PATIENT
  Age: 68 Year
  Sex: Female
  Weight: 42.6 kg

DRUGS (4)
  1. DARZALEX [Suspect]
     Active Substance: DARATUMUMAB
     Indication: PLASMA CELL MYELOMA
     Route: 041
     Dates: start: 20171211, end: 20180111
  2. DARZALEX [Suspect]
     Active Substance: DARATUMUMAB
     Route: 041
  3. DEXAMETHASONE. [Concomitant]
     Active Substance: DEXAMETHASONE
     Indication: PLASMA CELL MYELOMA
     Route: 065
     Dates: start: 20171211, end: 20171226
  4. LENALIDOMIDE [Concomitant]
     Active Substance: LENALIDOMIDE
     Indication: PLASMA CELL MYELOMA
     Route: 048
     Dates: start: 20171211, end: 20171231

REACTIONS (4)
  - Cytomegalovirus infection [Recovered/Resolved]
  - Cholecystitis [Recovered/Resolved]
  - Coombs test positive [Unknown]
  - Crossmatch incompatible [Unknown]

NARRATIVE: CASE EVENT DATE: 20171225
